FAERS Safety Report 13614401 (Version 1)
Quarter: 2017Q2

REPORT INFORMATION
  Report Type: Report from Study
  Country: JP (occurrence: JP)
  Receive Date: 20170606
  Receipt Date: 20170606
  Transmission Date: 20170830
  Serious: Yes (Hospitalization)
  Sender: FDA-Public Use
  Company Number: JP-ACTELION-A-CH2016-144382

PATIENT
  Age: 49 Year
  Sex: Female

DRUGS (12)
  1. BERAPROST SODIUM [Concomitant]
     Active Substance: BERAPROST SODIUM
     Indication: PRODUCT USED FOR UNKNOWN INDICATION
  2. FUROSEMIDE. [Concomitant]
     Active Substance: FUROSEMIDE
     Indication: PRODUCT USED FOR UNKNOWN INDICATION
     Dosage: 20 MG, QD
  3. NIFEDIPINE. [Concomitant]
     Active Substance: NIFEDIPINE
     Indication: PRODUCT USED FOR UNKNOWN INDICATION
  4. OPSUMIT [Suspect]
     Active Substance: MACITENTAN
     Dosage: 5 MG, OD
     Route: 048
     Dates: start: 20160420, end: 20160510
  5. WARFARIN [Concomitant]
     Active Substance: WARFARIN
     Indication: PRODUCT USED FOR UNKNOWN INDICATION
  6. ADEMPAS [Concomitant]
     Active Substance: RIOCIGUAT
     Indication: PRODUCT USED FOR UNKNOWN INDICATION
     Dosage: 6 MG, QD
  7. OPSUMIT [Suspect]
     Active Substance: MACITENTAN
     Indication: PULMONARY HYPERTENSION
     Dosage: 10 MG, OD
     Route: 048
     Dates: start: 20160601
  8. OPSUMIT [Suspect]
     Active Substance: MACITENTAN
     Dosage: 7.5 MG, OD
     Route: 048
     Dates: start: 20160511, end: 20160531
  9. FUROSEMIDE. [Concomitant]
     Active Substance: FUROSEMIDE
     Dosage: 30 MG, QD
     Dates: start: 20170221
  10. OPSUMIT [Suspect]
     Active Substance: MACITENTAN
     Dosage: 2.5 MG, OD
     Route: 048
     Dates: start: 20160330, end: 20160419
  11. FEBUXOSTAT. [Concomitant]
     Active Substance: FEBUXOSTAT
     Indication: PRODUCT USED FOR UNKNOWN INDICATION
  12. ADEMPAS [Concomitant]
     Active Substance: RIOCIGUAT
     Dosage: 7 MG, QD
     Dates: start: 20170221

REACTIONS (6)
  - Red blood cell count decreased [Recovered/Resolved]
  - Thyroiditis chronic [Recovering/Resolving]
  - Tricuspid valve incompetence [Unknown]
  - Anaemia [Recovered/Resolved]
  - Haematocrit decreased [Recovered/Resolved]
  - Haemoglobin decreased [Recovered/Resolved]

NARRATIVE: CASE EVENT DATE: 20160713
